FAERS Safety Report 21758004 (Version 1)
Quarter: 2022Q4

REPORT INFORMATION
  Report Type: Report from Study
  Country: EG (occurrence: EG)
  Receive Date: 20221221
  Receipt Date: 20221221
  Transmission Date: 20230113
  Serious: Yes (Other)
  Sender: FDA-Public Use
  Company Number: EG-002147023-NVSC2022EG290897

PATIENT
  Age: 3 Year
  Sex: Female

DRUGS (2)
  1. OMNITROPE [Suspect]
     Active Substance: SOMATROPIN
     Indication: Growth hormone deficiency
     Dosage: 0.4 MG, QD
     Route: 058
     Dates: start: 20211122
  2. VITAMINS [Concomitant]
     Active Substance: VITAMINS
     Indication: Weight increased
     Dosage: UNK UNK, QD (ONE SPOON)
     Route: 065

REACTIONS (3)
  - Haemoglobin decreased [Unknown]
  - Product availability issue [Not Recovered/Not Resolved]
  - Therapeutic response unexpected [Recovering/Resolving]

NARRATIVE: CASE EVENT DATE: 20221001
